FAERS Safety Report 8571418 (Version 2)
Quarter: 2014Q1

REPORT INFORMATION
  Report Type: Spontaneous
  Country: US (occurrence: None)
  Receive Date: 20120323
  Receipt Date: 20130305
  Transmission Date: 20141002
  Serious: Yes (Hospitalization, Other)
  Sender: FDA-Public Use
  Company Number: 163-21880-11112150

PATIENT
  Age: 84 Year
  Sex: Female

DRUGS (9)
  1. REVLIMID (LENALIDOMIDE) (5 MILLIGRAM, CAPSULE) [Suspect]
     Indication: MYELODYSPLASTIC SYNDROME
     Dosage: 5 MG, DAILY FOR 28 DAYS, PO
     Route: 048
     Dates: start: 200702
  2. ASPIRIN (ACETYLSALICYLIC ACID) [Concomitant]
  3. SPIRIVA [Concomitant]
  4. KONSYL ORIGINAL FORMULA PSYLLIUM FIBER [Concomitant]
  5. IMODIUM A-D (LOPERAMINE HYDROCHLORIDE) [Concomitant]
  6. VITAMIN D (ERGOCALIFEROL) [Concomitant]
  7. PROCRIT [Concomitant]
  8. BLOOD TRANSFUSION (BLOOD AND RELATED PRODUCTS) [Concomitant]
  9. ALBUTEROL SULFATE (SALBUTAMOL SULFATE) [Concomitant]

REACTIONS (4)
  - Myelodysplastic syndrome [None]
  - Disease progression [None]
  - Drug ineffective [None]
  - Pneumonia [None]
